FAERS Safety Report 5872600-3 (Version None)
Quarter: 2008Q3

REPORT INFORMATION
  Report Type: 
  Country: None (occurrence: None)
  Receive Date: 20080905
  Receipt Date: 20080825
  Transmission Date: 20090109
  Serious: Yes (Hospitalization)
  Sender: FDA-Public Use
  Company Number: ES-ROCHE-584476

PATIENT
  Age: 54 Year
  Sex: Male

DRUGS (2)
  1. CAPECITABINE [Suspect]
     Dosage: 825 MG/M2 TWICE DAILY FOR 5 DAYS/WEEK
     Route: 065
  2. OXALIPLATIN [Suspect]
     Dosage: ADMINISTERED AS A 2 HOUR INTRAVENOUS INFUSION ON DAYS 1, 8, AND 15. CURRENTLY WITH IMRT.
     Route: 042

REACTIONS (1)
  - PROCTITIS [None]
